FAERS Safety Report 17389144 (Version 1)
Quarter: 2020Q1

REPORT INFORMATION
  Report Type: Spontaneous
  Country: US (occurrence: US)
  Receive Date: 20200123
  Receipt Date: 20200123
  Transmission Date: 20200409
  Serious: Yes (Hospitalization)
  Sender: FDA-Public Use
  Company Number: None

PATIENT
  Age: 50 Year
  Sex: Male
  Weight: 117.93 kg

DRUGS (15)
  1. LOPRESSOR [Concomitant]
     Active Substance: METOPROLOL TARTRATE
  2. INSULIN ASPART [Concomitant]
     Active Substance: INSULIN ASPART
  3. GABAPENTIN. [Concomitant]
     Active Substance: GABAPENTIN
  4. ASPRIN [Concomitant]
     Active Substance: ASPIRIN
  5. COZAAR [Concomitant]
     Active Substance: LOSARTAN POTASSIUM
  6. TORSEMIDE. [Concomitant]
     Active Substance: TORSEMIDE
  7. MAGNESIUM [Concomitant]
     Active Substance: MAGNESIUM
  8. COENZYME Q-10 [Concomitant]
  9. DAPTOMYCIN 500MG [Suspect]
     Active Substance: DAPTOMYCIN
     Indication: CELLULITIS
     Route: 042
     Dates: start: 20200113
  10. VITAMIN D3 [Concomitant]
     Active Substance: CHOLECALCIFEROL
  11. ULORIC [Concomitant]
     Active Substance: FEBUXOSTAT
  12. PLAVIX [Concomitant]
     Active Substance: CLOPIDOGREL BISULFATE
  13. ZAROLXOLYN [Concomitant]
  14. ZETIA [Concomitant]
     Active Substance: EZETIMIBE
  15. DAPTOMYCIN 500MG [Suspect]
     Active Substance: DAPTOMYCIN
     Indication: LYMPHANGITIS
     Route: 042
     Dates: start: 20200113

REACTIONS (3)
  - Chills [None]
  - Somnolence [None]
  - Tremor [None]

NARRATIVE: CASE EVENT DATE: 20200117
